FAERS Safety Report 24996739 (Version 3)
Quarter: 2025Q3

REPORT INFORMATION
  Report Type: Spontaneous
  Country: US (occurrence: US)
  Receive Date: 20250221
  Receipt Date: 20250909
  Transmission Date: 20251021
  Serious: No
  Sender: BRISTOL-MYERS SQUIBB COMPANY
  Company Number: US-BRISTOL-MYERS SQUIBB COMPANY-2025-026826

PATIENT
  Age: 79 Year
  Sex: Male

DRUGS (2)
  1. POMALYST [Suspect]
     Active Substance: POMALIDOMIDE
     Indication: Plasma cell myeloma
  2. POMALYST [Suspect]
     Active Substance: POMALIDOMIDE
     Indication: Plasma cell myeloma in remission

REACTIONS (5)
  - Fatigue [Unknown]
  - Rash pruritic [Unknown]
  - Peripheral swelling [Unknown]
  - Rash [Unknown]
  - COVID-19 [Not Recovered/Not Resolved]
